FAERS Safety Report 4849067-7 (Version None)
Quarter: 2005Q4

REPORT INFORMATION
  Report Type: 
  Country: None (occurrence: None)
  Receive Date: 20051209
  Receipt Date: 20051206
  Transmission Date: 20060501
  Serious: Yes (Death, Life-Threatening, Hospitalization)
  Sender: FDA-Public Use
  Company Number: FR-BRISTOL-MYERS SQUIBB COMPANY-13206842

PATIENT
  Age: 81 Year
  Sex: Female

DRUGS (5)
  1. COUMADIN [Suspect]
     Indication: PULMONARY EMBOLISM
     Route: 048
     Dates: end: 20041113
  2. LASIX [Interacting]
     Dates: end: 20041113
  3. ATHYMIL [Concomitant]
     Indication: DYSTHYMIC DISORDER
  4. FORLAX [Concomitant]
     Indication: CONSTIPATION
  5. SPECIAFOLDINE [Concomitant]

REACTIONS (3)
  - DRUG INTERACTION [None]
  - FALL [None]
  - HAEMATOMA [None]
